APPROVED DRUG PRODUCT: DEXILANT
Active Ingredient: DEXLANSOPRAZOLE
Strength: 30MG
Dosage Form/Route: CAPSULE, DELAYED RELEASE;ORAL
Application: N022287 | Product #001 | TE Code: AB
Applicant: TAKEDA PHARMACEUTICALS USA INC
Approved: Jan 30, 2009 | RLD: Yes | RS: No | Type: RX

PATENTS:
Patent 9233103 | Expires: Mar 5, 2032
Patent 8173158 | Expires: Mar 17, 2030
Patent 7790755 | Expires: Aug 2, 2026
Patent 9238029 | Expires: Jan 17, 2026
Patent 8871273 | Expires: Jan 11, 2028
Patent 8105626 | Expires: Sep 27, 2026
Patent 8461187 | Expires: Jan 17, 2026
Patent 9011926 | Expires: Feb 24, 2026
Patent 7790755*PED | Expires: Feb 2, 2027
Patent 8105626*PED | Expires: Mar 27, 2027
Patent 8173158*PED | Expires: Sep 17, 2030
Patent 8461187*PED | Expires: Jul 17, 2026
Patent 8173158 | Expires: Mar 17, 2030
Patent 8173158 | Expires: Mar 17, 2030